FAERS Safety Report 23559251 (Version 1)
Quarter: 2024Q1

REPORT INFORMATION
  Report Type: Spontaneous
  Country: US (occurrence: US)
  Receive Date: 20240223
  Receipt Date: 20240223
  Transmission Date: 20240410
  Serious: Yes (Other)
  Sender: FDA-Public Use
  Company Number: US-ELI_LILLY_AND_COMPANY-US202402007767

PATIENT
  Age: 77 Year
  Sex: Female

DRUGS (1)
  1. HUMULIN N [Suspect]
     Active Substance: INSULIN HUMAN
     Indication: Product used for unknown indication
     Dosage: UNK UNK, UNKNOWN (FIVE TIMES A DAY)
     Route: 065

REACTIONS (7)
  - Lung neoplasm malignant [Recovered/Resolved]
  - Malignant melanoma [Unknown]
  - Breast cancer [Unknown]
  - Cerebrovascular accident [Recovered/Resolved]
  - Neoplasm malignant [Recovered/Resolved]
  - Malaise [Recovered/Resolved]
  - Neuropathy peripheral [Not Recovered/Not Resolved]
